FAERS Safety Report 13670845 (Version 1)
Quarter: 2017Q2

REPORT INFORMATION
  Report Type: Spontaneous
  Country: US (occurrence: US)
  Receive Date: 20170620
  Receipt Date: 20170620
  Transmission Date: 20170830
  Serious: No
  Sender: FDA-Public Use
  Company Number: US-ROCHE-1015173

PATIENT
  Sex: Male

DRUGS (1)
  1. XELODA [Suspect]
     Active Substance: CAPECITABINE
     Indication: COLON CANCER
     Route: 065
     Dates: start: 20111101, end: 20111114

REACTIONS (7)
  - Vomiting [Unknown]
  - Dehydration [Unknown]
  - Mass [Unknown]
  - Burning sensation [Unknown]
  - Rash erythematous [Unknown]
  - Nausea [Unknown]
  - Diarrhoea [Unknown]
